FAERS Safety Report 5860582-X (Version None)
Quarter: 2008Q3

REPORT INFORMATION
  Report Type: 
  Country: None (occurrence: None)
  Receive Date: 20080827
  Receipt Date: 20080122
  Transmission Date: 20090109
  Serious: No
  Sender: FDA-Public Use
  Company Number: US-ABBOTT-07P-163-0417174-00

PATIENT
  Sex: Female
  Weight: 72.64 kg

DRUGS (7)
  1. COATED PDS [Suspect]
     Indication: BLOOD CHOLESTEROL INCREASED
     Route: 048
     Dates: start: 20070912
  2. METOPROLOL SUCCINATE [Concomitant]
     Indication: HYPERTENSION
     Route: 048
  3. VALSARTAN [Concomitant]
     Indication: HYPERTENSION
     Route: 048
  4. SIMVASTATIN [Concomitant]
     Indication: BLOOD CHOLESTEROL INCREASED
     Route: 048
  5. FUROSEMIDE [Concomitant]
     Indication: FLUID RETENTION
     Route: 048
  6. LANTUS [Concomitant]
     Indication: DIABETES MELLITUS
     Route: 058
  7. POTASSIUM CHLORIDE [Concomitant]
     Indication: MINERAL SUPPLEMENTATION
     Route: 048

REACTIONS (4)
  - DIZZINESS [None]
  - FLUSHING [None]
  - HEADACHE [None]
  - PRURITUS [None]
